FAERS Safety Report 8524242-9 (Version None)
Quarter: 2012Q3

REPORT INFORMATION
  Report Type: 
  Country: None (occurrence: None)
  Receive Date: 20120720
  Receipt Date: 20120713
  Transmission Date: 20120928
  Serious: Yes (Death, Other)
  Sender: FDA-Public Use
  Company Number: JP-PFIZER INC-2012066548

PATIENT
  Age: 73 Year
  Sex: Male
  Weight: 74.4 kg

DRUGS (13)
  1. PURSENNID [Concomitant]
     Dosage: 24 MG, 1X/DAY
     Route: 048
     Dates: end: 20120228
  2. TORISEL [Suspect]
     Indication: METASTATIC RENAL CELL CARCINOMA
     Dosage: 25 MG, WEEKLY
     Route: 042
     Dates: start: 20120113, end: 20120224
  3. LEVOTHYROXINE SODIUM [Concomitant]
     Dosage: 100 UG, 1X/DAY
     Route: 048
  4. CORTRIL [Concomitant]
     Dosage: 20 MG, 1X/DAY
     Route: 048
  5. AMLODIPINE [Concomitant]
     Dosage: 5 MG, 2X/DAY
     Route: 048
     Dates: start: 20120202
  6. CHLOR-TRIMETON [Concomitant]
     Indication: PROPHYLAXIS
     Dosage: 10 MG, UNK
     Route: 042
     Dates: start: 20120113
  7. ALLOPURINOL [Concomitant]
     Dosage: 100 MG, 2X/DAY
     Route: 048
  8. BERIZYM [Concomitant]
     Indication: PANCREATECTOMY
     Dosage: 1 G, 3X/DAY
     Route: 048
     Dates: start: 20120202, end: 20120301
  9. DECADRON [Concomitant]
     Indication: PROPHYLAXIS
     Dosage: 6.6 MG, UNK
     Route: 042
     Dates: start: 20120113
  10. URSO 250 [Concomitant]
     Indication: RENAL CELL CARCINOMA
     Dosage: 100 MG, 3X/DAY
     Route: 048
  11. RABEPRAZOLE SODIUM [Concomitant]
     Dosage: 10 MG, 1X/DAY
     Route: 048
  12. LOXONIN [Concomitant]
     Indication: PROPHYLAXIS
     Dosage: 60 MG, AS NEEDED
     Route: 048
     Dates: start: 20120130
  13. LOSARTAN POTASSIUM [Concomitant]
     Dosage: 50 MG, 1X/DAY
     Route: 048
     Dates: end: 20120229

REACTIONS (6)
  - METASTATIC RENAL CELL CARCINOMA [None]
  - DISEASE PROGRESSION [None]
  - DIABETES MELLITUS [None]
  - PROTEINURIA [None]
  - OEDEMA [None]
  - INTERSTITIAL LUNG DISEASE [None]
